FAERS Safety Report 13639752 (Version 1)
Quarter: 2017Q2

REPORT INFORMATION
  Report Type: Spontaneous
  Country: US (occurrence: US)
  Receive Date: 20170609
  Receipt Date: 20170609
  Transmission Date: 20170830
  Serious: No
  Sender: FDA-Public Use
  Company Number: US-ROCHE-1425039

PATIENT
  Age: 69 Year
  Sex: Female
  Weight: 47.67 kg

DRUGS (3)
  1. KLONOPIN [Suspect]
     Active Substance: CLONAZEPAM
     Indication: DIZZINESS
     Route: 048
     Dates: start: 201410
  2. VITAMIN B12 [Concomitant]
     Active Substance: CYANOCOBALAMIN
     Route: 042
  3. KLONOPIN [Suspect]
     Active Substance: CLONAZEPAM
     Indication: VERTIGO POSITIONAL
     Route: 048
     Dates: start: 1995, end: 20140607

REACTIONS (20)
  - Palpitations [Unknown]
  - Neck pain [Not Recovered/Not Resolved]
  - Insomnia [Unknown]
  - Change of bowel habit [Unknown]
  - Fall [Unknown]
  - Diarrhoea [Not Recovered/Not Resolved]
  - Crying [Not Recovered/Not Resolved]
  - Asthenia [Unknown]
  - Dizziness [Not Recovered/Not Resolved]
  - Tremor [Unknown]
  - Amnesia [Not Recovered/Not Resolved]
  - Fear [Not Recovered/Not Resolved]
  - Emotional distress [Not Recovered/Not Resolved]
  - Memory impairment [Unknown]
  - Dysphagia [Unknown]
  - Abdominal pain upper [Not Recovered/Not Resolved]
  - Anxiety [Not Recovered/Not Resolved]
  - Product quality issue [Unknown]
  - Faeces discoloured [Not Recovered/Not Resolved]
  - Pollakiuria [Unknown]

NARRATIVE: CASE EVENT DATE: 20140607
